FAERS Safety Report 5973984-8 (Version None)
Quarter: 2008Q4

REPORT INFORMATION
  Report Type: 
  Country: None (occurrence: None)
  Receive Date: 20081201
  Receipt Date: 20080918
  Transmission Date: 20090506
  Serious: No
  Sender: FDA-Public Use
  Company Number: US-AMGEN-KDL301156

PATIENT
  Sex: Female
  Weight: 109 kg

DRUGS (12)
  1. ENBREL [Suspect]
     Indication: RHEUMATOID ARTHRITIS
     Route: 058
     Dates: start: 20031204
  2. METHOTREXATE [Concomitant]
     Route: 048
  3. FOLIC ACID [Concomitant]
  4. METFORMIN HCL [Concomitant]
  5. NORVASC [Concomitant]
  6. VYTORIN [Concomitant]
  7. WELLBUTRIN [Concomitant]
  8. ZYRTEC [Concomitant]
  9. HYZAAR [Concomitant]
  10. BYETTA [Concomitant]
  11. MELOXICAM [Concomitant]
  12. LOVAZA [Concomitant]

REACTIONS (2)
  - INJECTION SITE IRRITATION [None]
  - RHEUMATOID ARTHRITIS [None]
